FAERS Safety Report 7334371-3 (Version None)
Quarter: 2011Q1

REPORT INFORMATION
  Report Type: 
  Country: None (occurrence: None)
  Receive Date: 20110307
  Receipt Date: 20110221
  Transmission Date: 20110831
  Serious: Yes (Other)
  Sender: FDA-Public Use
  Company Number: PHFR2011GB01469

PATIENT
  Sex: Male

DRUGS (2)
  1. TEGRETOL [Suspect]
     Indication: TRIGEMINAL NEURALGIA
     Dosage: 200 MG, TID
     Route: 048
  2. CO-CODAMOL [Concomitant]
     Indication: PAIN

REACTIONS (2)
  - EYE PAIN [None]
  - MALIGNANT CRANIAL NERVE NEOPLASM [None]
